FAERS Safety Report 6078477-8 (Version None)
Quarter: 2009Q1

REPORT INFORMATION
  Report Type: 
  Country: None (occurrence: None)
  Receive Date: 20090212
  Receipt Date: 20090212
  Transmission Date: 20090719
  Serious: Yes (Other)
  Sender: FDA-Public Use
  Company Number: None

PATIENT
  Age: 42 Year
  Sex: Female
  Weight: 79.3795 kg

DRUGS (1)
  1. CARAC [Suspect]
     Indication: PHOTODERMATOSIS
     Dosage: ONCE A DAY FOR 3 WEEKS ONCE A DAY TOP
     Route: 061
     Dates: start: 20090125, end: 20090206

REACTIONS (13)
  - ACNE [None]
  - BITE [None]
  - CRYING [None]
  - DEFORMITY [None]
  - FEELING ABNORMAL [None]
  - NAUSEA [None]
  - PAIN [None]
  - PAIN OF SKIN [None]
  - PYREXIA [None]
  - SCAB [None]
  - SCAR [None]
  - SKIN EXFOLIATION [None]
  - SWELLING [None]
